FAERS Safety Report 21217630 (Version 6)
Quarter: 2023Q2

REPORT INFORMATION
  Report Type: Spontaneous
  Country: US (occurrence: US)
  Receive Date: 20220816
  Receipt Date: 20230515
  Transmission Date: 20230722
  Serious: Yes (Hospitalization, Other)
  Sender: FDA-Public Use
  Company Number: US-PFIZER INC-PV202200043568

PATIENT
  Age: 73 Year
  Sex: Female
  Weight: 88.9 kg

DRUGS (1)
  1. XELJANZ XR [Suspect]
     Active Substance: TOFACITINIB CITRATE
     Indication: Rheumatoid arthritis
     Dosage: 11 MG, DAILY
     Dates: start: 2022, end: 2022

REACTIONS (5)
  - Cerebrovascular accident [Recovered/Resolved]
  - Speech disorder [Unknown]
  - Feeling abnormal [Recovered/Resolved]
  - Bone pain [Unknown]
  - Arthritis [Unknown]

NARRATIVE: CASE EVENT DATE: 20220505
